FAERS Safety Report 4463251-6 (Version None)
Quarter: 2004Q3

REPORT INFORMATION
  Report Type: 
  Country: None (occurrence: None)
  Receive Date: 20040930
  Receipt Date: 20040909
  Transmission Date: 20050211
  Serious: Yes (Hospitalization)
  Sender: FDA-Public Use
  Company Number: JP-GLAXOSMITHKLINE-B0345159A

PATIENT
  Age: 77 Year
  Sex: Male

DRUGS (10)
  1. PAXIL [Suspect]
     Indication: DEPRESSION
     Dosage: 10MG PER DAY
     Route: 048
     Dates: start: 20040812, end: 20040824
  2. DIOVAN [Concomitant]
     Dosage: 2U PER DAY
     Route: 048
  3. CONIEL [Concomitant]
     Dosage: 2U PER DAY
     Route: 048
  4. TINELAC [Concomitant]
     Dosage: 3U PER DAY
     Route: 048
  5. FUROSEMIDE [Concomitant]
     Dosage: 1U PER DAY
     Route: 048
  6. WARFARIN SODIUM [Concomitant]
     Dosage: 1U PER DAY
     Route: 048
  7. KALIMATE [Concomitant]
     Dosage: 1U PER DAY
     Route: 048
  8. KREMEZIN [Concomitant]
     Dosage: 1U PER DAY
     Route: 048
  9. ZANTAC [Concomitant]
     Dosage: 1U PER DAY
     Route: 048
  10. EURODIN [Concomitant]
     Dosage: 1U PER DAY
     Route: 048

REACTIONS (4)
  - DRUG ERUPTION [None]
  - EOSINOPHIL COUNT INCREASED [None]
  - ERYTHEMA [None]
  - PRURITUS [None]
